FAERS Safety Report 23144689 (Version 1)
Quarter: 2023Q4

REPORT INFORMATION
  Report Type: Spontaneous
  Country: GB (occurrence: GB)
  Receive Date: 20231103
  Receipt Date: 20231103
  Transmission Date: 20240109
  Serious: Yes (Life-Threatening, Hospitalization, Other)
  Sender: FDA-Public Use
  Company Number: GB-BoehringerIngelheim-2023-BI-270821

PATIENT
  Age: 55 Year
  Sex: Female

DRUGS (1)
  1. EMPAGLIFLOZIN [Suspect]
     Active Substance: EMPAGLIFLOZIN
     Indication: Type 2 diabetes mellitus

REACTIONS (3)
  - Euglycaemic diabetic ketoacidosis [Unknown]
  - Pituitary-dependent Cushing^s syndrome [Unknown]
  - General physical health deterioration [Unknown]
